FAERS Safety Report 5286277-1 (Version None)
Quarter: 2007Q1

REPORT INFORMATION
  Report Type: 
  Country: None (occurrence: None)
  Receive Date: 20070329
  Receipt Date: 20070322
  Transmission Date: 20070707
  Serious: Yes (Hospitalization)
  Sender: FDA-Public Use
  Company Number: 2007BI006464

PATIENT
  Age: 54 Year
  Sex: Female

DRUGS (1)
  1. NATALIZUMAB [Suspect]
     Indication: MULTIPLE SCLEROSIS
     Dosage: 300 MG; QM; IV
     Route: 042
     Dates: start: 20061214

REACTIONS (7)
  - BALANCE DISORDER [None]
  - GAIT DISTURBANCE [None]
  - OEDEMA PERIPHERAL [None]
  - PARAESTHESIA [None]
  - ROTATOR CUFF SYNDROME [None]
  - TINNITUS [None]
  - URINARY TRACT INFECTION [None]
